FAERS Safety Report 10046818 (Version 1)
Quarter: 2014Q1

REPORT INFORMATION
  Report Type: Report from Study
  Country: BR (occurrence: BR)
  Receive Date: 20140331
  Receipt Date: 20140331
  Transmission Date: 20141002
  Serious: Yes (Other)
  Sender: FDA-Public Use
  Company Number: PHHY2014BR036315

PATIENT
  Sex: Male
  Weight: 90 kg

DRUGS (4)
  1. DIOVAN [Suspect]
     Indication: ARRHYTHMIA
     Dosage: 1 DF, (320 MG) QD (IN FASTING IN THE MORING)
  2. DIOVAN [Suspect]
     Indication: OFF LABEL USE
     Dosage: 2 DF, DAILY
  3. VALSARTAN [Suspect]
     Indication: HYPERTENSION
     Dosage: 1 DF (320 MG), ONCE/SINGLE
     Route: 048
  4. LORAZEPAM [Concomitant]
     Indication: SLEEP DISORDER
     Dosage: 2 MG, UNK

REACTIONS (9)
  - Arrhythmia [Recovering/Resolving]
  - Dyspnoea [Recovering/Resolving]
  - Procedural haemorrhage [Unknown]
  - Mental disorder [Recovering/Resolving]
  - Drug intolerance [Recovering/Resolving]
  - Malaise [Recovering/Resolving]
  - Fatigue [Recovering/Resolving]
  - Abdominal pain upper [Recovering/Resolving]
  - Blood pressure increased [Unknown]
